FAERS Safety Report 10528382 (Version 1)
Quarter: 2014Q4

REPORT INFORMATION
  Report Type: Spontaneous
  Country: CH (occurrence: CH)
  Receive Date: 20141020
  Receipt Date: 20141020
  Transmission Date: 20150528
  Serious: Yes (Hospitalization, Other)
  Sender: FDA-Public Use
  Company Number: CH-ASTRAZENECA-2014SE78064

PATIENT
  Age: 26410 Day
  Sex: Male

DRUGS (6)
  1. ZOLADEX [Suspect]
     Active Substance: GOSERELIN ACETATE
     Indication: PROSTATE CANCER
     Route: 058
     Dates: start: 20140820, end: 20140820
  2. NOVORAPID [Concomitant]
     Active Substance: INSULIN ASPART
     Dates: start: 20140815, end: 20140827
  3. CASODEX [Concomitant]
     Active Substance: BICALUTAMIDE
     Dates: start: 20140815
  4. TEMESTA [Concomitant]
     Active Substance: LORAZEPAM
     Dates: start: 20140818, end: 20140831
  5. TRAMAL [Concomitant]
     Active Substance: TRAMADOL
     Dates: start: 20140731, end: 20140827
  6. DEXAMETHASON [Concomitant]
     Active Substance: DEXAMETHASONE
     Dates: start: 20140730, end: 20140903

REACTIONS (1)
  - Acute myocardial infarction [Recovering/Resolving]

NARRATIVE: CASE EVENT DATE: 20140820
